FAERS Safety Report 8888713 (Version 2)
Quarter: 2012Q4

REPORT INFORMATION
  Report Type: 
  Country: SE (occurrence: SE)
  Receive Date: 20121106
  Receipt Date: 20121213
  Transmission Date: 20130627
  Serious: Yes (Other)
  Sender: FDA-Public Use
  Company Number: SE-B.I. PHARMACEUTICALS,INC./RIDGEFIELD-2012-SW-00819SW

PATIENT
  Age: 88 Year
  Sex: Male
  Weight: 72 kg

DRUGS (6)
  1. PRADAXA [Suspect]
     Indication: ATRIAL FIBRILLATION
     Dosage: 220 mg
     Dates: start: 20120214, end: 20120520
  2. PRADAXA [Suspect]
     Dosage: 150 mg
     Dates: start: 20120521, end: 20121004
  3. WARAN [Suspect]
     Dates: start: 20121010
  4. SELOKEN ZOC [Concomitant]
     Dosage: 50 mg
  5. ENALAPRIL [Concomitant]
     Dosage: 10 mg
  6. KEPPRA [Concomitant]
     Dosage: 500 mg

REACTIONS (3)
  - Cerebrovascular accident [Unknown]
  - Haemoglobin decreased [Recovered/Resolved]
  - Occult blood positive [Recovered/Resolved]
